FAERS Safety Report 15524925 (Version 2)
Quarter: 2018Q4

REPORT INFORMATION
  Report Type: Report from Study
  Country: None (occurrence: NL)
  Receive Date: 20181018
  Receipt Date: 20181122
  Transmission Date: 20190205
  Serious: Yes (Death)
  Sender: FDA-Public Use
  Company Number: NL-ABBVIE-18S-114-2523666-00

PATIENT
  Age: 53 Year
  Sex: Male

DRUGS (5)
  1. DUODOPA [Suspect]
     Active Substance: CARBIDOPA\LEVODOPA
     Dosage: 24 HOUR ADMINISTRATION
     Route: 050
     Dates: start: 20160310, end: 20180929
  2. CLOZAPINE. [Concomitant]
     Active Substance: CLOZAPINE
     Indication: HALLUCINATION
     Dosage: 6.25
     Route: 048
     Dates: start: 2016, end: 20180929
  3. DUODOPA [Suspect]
     Active Substance: CARBIDOPA\LEVODOPA
     Indication: PARKINSON^S DISEASE
     Route: 050
     Dates: start: 20160223, end: 201603
  4. MIRTAZAPIN [Concomitant]
     Active Substance: MIRTAZAPINE
     Indication: SLEEP DISORDER
     Dosage: 15
     Route: 048
     Dates: start: 2016, end: 20180929
  5. RIVASTIGMINE. [Concomitant]
     Active Substance: RIVASTIGMINE
     Indication: COGNITIVE DISORDER
     Dosage: 9.5
     Route: 003
     Dates: start: 2014, end: 20180929

REACTIONS (5)
  - C-reactive protein increased [Unknown]
  - Aspiration [Fatal]
  - Abdominal pain [Unknown]
  - Urinary retention [Fatal]
  - Constipation [Fatal]

NARRATIVE: CASE EVENT DATE: 20180927
